FAERS Safety Report 24787722 (Version 8)
Quarter: 2025Q2

REPORT INFORMATION
  Report Type: Report from Study
  Country: AU (occurrence: AU)
  Receive Date: 20241230
  Receipt Date: 20250429
  Transmission Date: 20250716
  Serious: Yes (Life-Threatening, Hospitalization, Other)
  Sender: TAKEDA
  Company Number: AU-TAKEDA-2024TUS111111

PATIENT
  Age: 90 Year
  Sex: Male

DRUGS (11)
  1. VEDOLIZUMAB [Suspect]
     Active Substance: VEDOLIZUMAB
     Indication: Colitis ulcerative
     Dosage: 300 MILLIGRAM, Q4WEEKS
  2. VEDOLIZUMAB [Suspect]
     Active Substance: VEDOLIZUMAB
     Dosage: 300 MILLIGRAM, Q4WEEKS
  3. Cartia [Concomitant]
  4. ATORVASTATIN [Concomitant]
     Active Substance: ATORVASTATIN
  5. VITAMIN D [Concomitant]
     Active Substance: VITAMIN D NOS
  6. ESOMEPRAZOLE [Concomitant]
     Active Substance: ESOMEPRAZOLE
  7. MESALAMINE [Concomitant]
     Active Substance: MESALAMINE
  8. METOPROLOL [Concomitant]
     Active Substance: METOPROLOL
  9. ACETAMINOPHEN [Concomitant]
     Active Substance: ACETAMINOPHEN
  10. DUTASTERIDE [Concomitant]
     Active Substance: DUTASTERIDE
  11. BIMATOPROST\TIMOLOL [Concomitant]
     Active Substance: BIMATOPROST\TIMOLOL

REACTIONS (16)
  - Intracranial aneurysm [Unknown]
  - Cardiac disorder [Unknown]
  - Fall [Not Recovered/Not Resolved]
  - Urinary tract infection [Recovered/Resolved]
  - Sepsis [Recovered/Resolved]
  - Blood pressure systolic decreased [Recovered/Resolved]
  - Blood pressure diastolic abnormal [Recovered/Resolved]
  - Lethargy [Unknown]
  - Hypoacusis [Not Recovered/Not Resolved]
  - Weight decreased [Unknown]
  - Wound infection [Not Recovered/Not Resolved]
  - Asthenia [Not Recovered/Not Resolved]
  - Constipation [Recovered/Resolved]
  - Fatigue [Unknown]
  - Product dose omission issue [Recovered/Resolved]
  - Poor venous access [Recovered/Resolved]

NARRATIVE: CASE EVENT DATE: 20241101
